FAERS Safety Report 10970426 (Version 1)
Quarter: 2015Q1

REPORT INFORMATION
  Report Type: Report from Study
  Country: CA (occurrence: CA)
  Receive Date: 20150331
  Receipt Date: 20150331
  Transmission Date: 20150721
  Serious: Yes (Hospitalization, Other)
  Sender: FDA-Public Use
  Company Number: CA-ABBVIE-15K-028-1338070-00

PATIENT
  Sex: Male
  Weight: 96.25 kg

DRUGS (15)
  1. REMICADE [Concomitant]
     Active Substance: INFLIXIMAB
     Indication: CROHN^S DISEASE
     Dosage: 05MG/KG
     Route: 042
     Dates: start: 200602, end: 2013
  2. HUMIRA [Suspect]
     Active Substance: ADALIMUMAB
     Route: 058
     Dates: start: 201405, end: 201412
  3. SALOFALK [Concomitant]
     Active Substance: MESALAMINE
     Indication: PROCTITIS
     Route: 054
     Dates: start: 2005
  4. FLAGYL [Concomitant]
     Active Substance: METRONIDAZOLE\METRONIDAZOLE HYDROCHLORIDE
     Indication: FISTULA
     Dates: start: 2005, end: 2005
  5. REMICADE [Concomitant]
     Active Substance: INFLIXIMAB
     Indication: FISTULA
     Dosage: 10 MG/KG
     Route: 042
     Dates: start: 200602, end: 2013
  6. FLAGYL [Concomitant]
     Active Substance: METRONIDAZOLE\METRONIDAZOLE HYDROCHLORIDE
     Dates: start: 2006, end: 2006
  7. FLAGYL [Concomitant]
     Active Substance: METRONIDAZOLE\METRONIDAZOLE HYDROCHLORIDE
     Dates: start: 2007, end: 2007
  8. FLAGYL [Concomitant]
     Active Substance: METRONIDAZOLE\METRONIDAZOLE HYDROCHLORIDE
     Dates: start: 2013, end: 2013
  9. PROBACLAC [Concomitant]
     Indication: PRODUCT USED FOR UNKNOWN INDICATION
     Dates: start: 2007, end: 2007
  10. CIPRO [Concomitant]
     Active Substance: CIPROFLOXACIN HYDROCHLORIDE
     Route: 048
     Dates: start: 2006, end: 2006
  11. IMURAN [Concomitant]
     Active Substance: AZATHIOPRINE
     Indication: FISTULA
     Route: 048
     Dates: start: 2006, end: 2006
  12. CIPRO [Concomitant]
     Active Substance: CIPROFLOXACIN HYDROCHLORIDE
     Indication: FISTULA
     Route: 048
     Dates: start: 2005, end: 2005
  13. HUMIRA [Suspect]
     Active Substance: ADALIMUMAB
     Indication: CROHN^S DISEASE
     Route: 058
     Dates: start: 20130204, end: 201405
  14. ASACOL [Concomitant]
     Active Substance: MESALAMINE
     Indication: CROHN^S DISEASE
     Route: 048
     Dates: start: 2004, end: 2005
  15. CIPRO [Concomitant]
     Active Substance: CIPROFLOXACIN HYDROCHLORIDE
     Route: 048
     Dates: start: 2007, end: 2007

REACTIONS (7)
  - Diverticulitis [Recovered/Resolved]
  - Abscess [Unknown]
  - Abdominal pain upper [Unknown]
  - Large intestinal stenosis [Unknown]
  - Colonic abscess [Recovered/Resolved]
  - Diverticular fistula [Recovered/Resolved]
  - Diverticulitis [Recovered/Resolved]

NARRATIVE: CASE EVENT DATE: 2014
